FAERS Safety Report 10096721 (Version 1)
Quarter: 2014Q2

REPORT INFORMATION
  Report Type: Spontaneous
  Country: US (occurrence: None)
  Receive Date: 20140421
  Receipt Date: 20140421
  Transmission Date: 20141212
  Serious: Yes (Other)
  Sender: FDA-Public Use
  Company Number: None

PATIENT
  Age: 47 Year
  Sex: Female

DRUGS (5)
  1. SOVALDI 400MG GILEAD SCIENCES [Suspect]
     Indication: HEPATITIS C
     Route: 048
     Dates: start: 20140305
  2. LOSARTAN [Concomitant]
  3. OMEPRAZOLE [Concomitant]
  4. CELEXA [Concomitant]
  5. XANAX [Concomitant]

REACTIONS (4)
  - Fatigue [None]
  - Pruritus [None]
  - Rash [None]
  - Anaemia [None]
